FAERS Safety Report 8342914-6 (Version None)
Quarter: 2012Q2

REPORT INFORMATION
  Report Type: 
  Country: None (occurrence: None)
  Receive Date: 20120508
  Receipt Date: 20120504
  Transmission Date: 20120825
  Serious: Yes (Other)
  Sender: FDA-Public Use
  Company Number: US-PFIZER INC-2012110348

PATIENT
  Sex: Male
  Weight: 83.9 kg

DRUGS (16)
  1. TACROLIMUS [Suspect]
     Indication: BONE MARROW TRANSPLANT
     Dosage: 0.5 MG, 2X/DAY
     Dates: start: 20081001, end: 20120101
  2. TAMSULOSIN HYDROCHLORIDE [Concomitant]
     Dosage: UNK
  3. MAGNESIUM COMPOSITUM [Concomitant]
     Dosage: UNK
  4. RAPAMUNE [Suspect]
     Indication: BONE MARROW TRANSPLANT
     Dosage: 1 MG, DAILY
     Route: 048
     Dates: start: 20120101
  5. BACTRIM [Concomitant]
     Dosage: UNK
  6. PREDNISONE [Concomitant]
     Dosage: UNK
  7. DEXAMETHASONE [Concomitant]
     Dosage: UNK
  8. ACYCLOVIR [Concomitant]
     Dosage: UNK
  9. HYDROCORTISONE [Concomitant]
     Dosage: UNK
  10. POTASSIUM [Concomitant]
     Dosage: UNK
  11. ENTOCORT EC [Suspect]
     Indication: BONE MARROW TRANSPLANT
     Dosage: UNK
  12. SYMBICORT [Concomitant]
     Dosage: UNK
  13. URSODIOL [Concomitant]
     Dosage: UNK
  14. CALCIUM CARBONATE [Concomitant]
     Dosage: UNK
  15. VITAMIN D [Concomitant]
     Dosage: UNK, UNK
  16. VORICONAZOLE [Concomitant]
     Dosage: UNK

REACTIONS (1)
  - GRAFT VERSUS HOST DISEASE [None]
